FAERS Safety Report 17875262 (Version 1)
Quarter: 2020Q2

REPORT INFORMATION
  Report Type: Not Available
  Country: US (occurrence: US)
  Receive Date: 20200609
  Receipt Date: 20200609
  Transmission Date: 20200714
  Serious: No
  Sender: FDA-Public Use
  Company Number: US-NEUROCRINE BIOSCIENCES INC.-2020NBI01736

PATIENT
  Age: 68 Year
  Sex: Male

DRUGS (14)
  1. QUETIAPINE. [Concomitant]
     Active Substance: QUETIAPINE
  2. BENZATROPINE [Concomitant]
     Active Substance: BENZTROPINE
  3. ALBUTEROL. [Concomitant]
     Active Substance: ALBUTEROL
  4. CHOLECALCIFEROL [Concomitant]
     Active Substance: CHOLECALCIFEROL
  5. PANTOPRAZOLE [Concomitant]
     Active Substance: PANTOPRAZOLE
  6. PREDNISONE. [Concomitant]
     Active Substance: PREDNISONE
  7. BUPROPION. [Concomitant]
     Active Substance: BUPROPION
  8. LORAZEPAM. [Concomitant]
     Active Substance: LORAZEPAM
  9. DOXAZOSIN [Concomitant]
     Active Substance: DOXAZOSIN MESYLATE
  10. INGREZZA [Suspect]
     Active Substance: VALBENAZINE
     Indication: TARDIVE DYSKINESIA
     Route: 048
  11. METOPROLOL. [Concomitant]
     Active Substance: METOPROLOL
  12. ATORVASTATIN [Concomitant]
     Active Substance: ATORVASTATIN
  13. RISPERDAL [Concomitant]
     Active Substance: RISPERIDONE
  14. TOPROL XL [Concomitant]
     Active Substance: METOPROLOL SUCCINATE

REACTIONS (2)
  - Chills [Unknown]
  - Hyperhidrosis [Unknown]
